FAERS Safety Report 16803722 (Version 1)
Quarter: 2019Q3

REPORT INFORMATION
  Report Type: Spontaneous
  Country: JP (occurrence: JP)
  Receive Date: 20190913
  Receipt Date: 20190913
  Transmission Date: 20191005
  Serious: Yes (Life-Threatening, Hospitalization, Other)
  Sender: FDA-Public Use
  Company Number: JP-009507513-1906JPN002083J

PATIENT
  Age: 78 Year
  Sex: Male
  Weight: 56 kg

DRUGS (12)
  1. ACETAMINOPHEN. [Concomitant]
     Active Substance: ACETAMINOPHEN
     Indication: PAIN
     Dosage: 200 MILLIGRAM, TID
     Route: 048
     Dates: start: 20190411
  2. IMIDAPRIL HYDROCHLORIDE [Concomitant]
     Active Substance: IMIDAPRIL HYDROCHLORIDE
     Dosage: 2.5 DOSAGE FORM, QD
     Route: 048
     Dates: start: 20190401
  3. CODEINE PHOSPHATE HYDRATE [Concomitant]
     Active Substance: CODEINE PHOSPHATE
     Indication: COUGH
     Dosage: 2 GRAM, TID
     Route: 048
     Dates: start: 20190425
  4. MEDICON [Concomitant]
     Active Substance: DEXTROMETHORPHAN HYDROBROMIDE
     Indication: COUGH
     Dosage: 15 MILLIGRAM, TID
     Route: 048
     Dates: start: 20190403
  5. OXINORM [Concomitant]
     Indication: COUGH
     Dosage: 2.5 GRAM, PRN
     Route: 048
     Dates: start: 20190423
  6. AMLODIPINE [Concomitant]
     Active Substance: AMLODIPINE BESYLATE
     Dosage: 5 DOSAGE FORM, QD
     Route: 048
     Dates: start: 20190401
  7. AMBROXOL HYDROCHLORIDE [Concomitant]
     Active Substance: AMBROXOL HYDROCHLORIDE
     Dosage: 15 MILLIGRAM, TID
     Route: 048
     Dates: start: 20190501
  8. KEYTRUDA [Suspect]
     Active Substance: PEMBROLIZUMAB
     Indication: TRANSITIONAL CELL CARCINOMA
     Dosage: 200 MILLIGRAM, Q3W
     Route: 041
     Dates: start: 20190402, end: 20190402
  9. TRAMADOL HYDROCHLORIDE. [Concomitant]
     Active Substance: TRAMADOL HYDROCHLORIDE
     Indication: PAIN
     Dosage: 25 DOSAGE FORM, TID
     Route: 048
     Dates: start: 20190411
  10. ALLOPURINOL. [Concomitant]
     Active Substance: ALLOPURINOL
     Dosage: 100 DOSAGE FORM, QD
     Route: 048
     Dates: start: 20190401
  11. BROTIZOLAM [Concomitant]
     Active Substance: BROTIZOLAM
     Dosage: 0.25 DOSAGE FORM, QD
     Route: 048
     Dates: start: 20190401
  12. CARBOCISTEINE [Concomitant]
     Active Substance: CARBOCYSTEINE
     Dosage: 500 MILLIGRAM, TID
     Route: 048
     Dates: start: 20190501

REACTIONS (2)
  - Pneumonia bacterial [Recovered/Resolved]
  - Interstitial lung disease [Recovered/Resolved]

NARRATIVE: CASE EVENT DATE: 20190423
